FAERS Safety Report 8413704-0 (Version None)
Quarter: 2012Q2

REPORT INFORMATION
  Report Type: 
  Country: None (occurrence: None)
  Receive Date: 20120605
  Receipt Date: 20120529
  Transmission Date: 20120825
  Serious: Yes (Hospitalization, Other)
  Sender: FDA-Public Use
  Company Number: US-UCBSA-058335

PATIENT
  Age: 9 Year
  Sex: Male

DRUGS (8)
  1. CARBIDOPA + LEVODOPA [Suspect]
     Dosage: 10/100 MG
  2. BACLOFEN [Concomitant]
     Indication: MUSCLE SPASTICITY
     Route: 048
  3. CARBIDOPA + LEVODOPA [Suspect]
     Indication: DYSTONIA
     Dosage: 10/100 MG WEANED OFF WITH SLOW TAPER
  4. TRIHEXYPHENIDYL HCL [Concomitant]
     Indication: DYSTONIA
  5. BACLOFEN [Concomitant]
     Route: 048
  6. CLONAZEPAM [Concomitant]
     Indication: MUSCLE SPASTICITY
  7. CLONAZEPAM [Concomitant]
  8. CARBIDOPA + LEVODOPA [Suspect]
     Dosage: 25/100 MG

REACTIONS (2)
  - ILEUS [None]
  - NEUROLEPTIC MALIGNANT SYNDROME [None]
